FAERS Safety Report 11694957 (Version 3)
Quarter: 2016Q3

REPORT INFORMATION
  Report Type: Spontaneous
  Country: FR (occurrence: FR)
  Receive Date: 20151103
  Receipt Date: 20160701
  Transmission Date: 20161109
  Serious: Yes (Hospitalization, Other)
  Sender: FDA-Public Use
  Company Number: FR-BRISTOL-MYERS SQUIBB COMPANY-BMS-2015-073847

PATIENT
  Sex: Male

DRUGS (2)
  1. ABILIFY MAINTENA [Suspect]
     Active Substance: ARIPIPRAZOLE
     Indication: SCHIZOPHRENIA
     Dosage: 400 MG, QMO
     Route: 030
  2. ABILIFY [Suspect]
     Active Substance: ARIPIPRAZOLE
     Indication: SCHIZOPHRENIA
     Dosage: 20 MG, QD
     Route: 048
     Dates: start: 201502

REACTIONS (3)
  - Delirium [Recovered/Resolved]
  - Drug effect decreased [Unknown]
  - Psychotic disorder [Recovered/Resolved]
